FAERS Safety Report 21800665 (Version 1)
Quarter: 2022Q4

REPORT INFORMATION
  Report Type: Spontaneous
  Country: ES (occurrence: ES)
  Receive Date: 20221230
  Receipt Date: 20221230
  Transmission Date: 20230113
  Serious: Yes (Other)
  Sender: FDA-Public Use
  Company Number: None

PATIENT
  Age: 48 Year
  Sex: Male
  Weight: 78 kg

DRUGS (4)
  1. SINGULAIR [Suspect]
     Active Substance: MONTELUKAST SODIUM
     Indication: Asthma
     Dosage: UNK; FILM COATED TABLETS; 28 TABLETS
     Route: 048
     Dates: start: 20200301
  2. FLUTICASONE PROPIONATE [Concomitant]
     Active Substance: FLUTICASONE PROPIONATE
     Indication: Nasal polyps
     Dosage: 28 SPRAYS UNIT DOSE PACKS OF 0.4 ML
     Dates: start: 20200316
  3. SIMVASTATIN [Concomitant]
     Active Substance: SIMVASTATIN
     Indication: Blood cholesterol increased
     Dosage: UNK; GENERIC 28 TABLETS
     Dates: start: 20201116
  4. DUORESP SPIROMAX [BUDESONIDE;FORMOTEROL FUMARATE] [Concomitant]
     Indication: Asthma
     Dosage: 1 INHALATOR WITH (120 DOSES)
     Dates: start: 20190901

REACTIONS (2)
  - Anxiety [Recovering/Resolving]
  - Angina pectoris [Recovering/Resolving]

NARRATIVE: CASE EVENT DATE: 20201201
